FAERS Safety Report 7355998-9 (Version None)
Quarter: 2011Q1

REPORT INFORMATION
  Report Type: 
  Country: None (occurrence: None)
  Receive Date: 20110316
  Receipt Date: 20110301
  Transmission Date: 20110831
  Serious: No
  Sender: FDA-Public Use
  Company Number: US-ABBOTT-11P-163-0708317-00

PATIENT
  Sex: Female
  Weight: 75.818 kg

DRUGS (11)
  1. TEMAZEPAM [Concomitant]
     Indication: INSOMNIA
  2. TIMOLOL [Concomitant]
     Indication: GLAUCOMA
  3. SULFAMETHOXAZOLE [Suspect]
     Indication: KIDNEY INFECTION
     Dates: start: 20110226
  4. BENICAR [Concomitant]
     Indication: BLOOD PRESSURE
  5. METOPROLOL SUCCINATE [Concomitant]
     Indication: BLOOD PRESSURE
  6. DIAZEPAM [Concomitant]
     Indication: ANXIETY
  7. DRIMONIBINE [Concomitant]
     Indication: GLAUCOMA
     Dosage: 1 DROP IN EACH EYE EVERY AM/PM
  8. ASPIRIN [Concomitant]
     Indication: BACK PAIN
  9. TRILIPIX [Suspect]
     Indication: BLOOD CHOLESTEROL
     Dates: start: 20110209
  10. FUROSEMIDE [Concomitant]
     Indication: FLUID RETENTION
  11. GLIPIZIDE [Concomitant]
     Indication: DIABETES MELLITUS

REACTIONS (7)
  - KIDNEY INFECTION [None]
  - NAUSEA [None]
  - ABDOMINAL DISCOMFORT [None]
  - RENAL PAIN [None]
  - FLUSHING [None]
  - DYSURIA [None]
  - MYALGIA [None]
